FAERS Safety Report 13960160 (Version 1)
Quarter: 2017Q3

REPORT INFORMATION
  Report Type: Spontaneous
  Country: US (occurrence: None)
  Receive Date: 20170912
  Receipt Date: 20170912
  Transmission Date: 20171128
  Serious: Yes (Hospitalization)
  Sender: FDA-Public Use
  Company Number: None

PATIENT
  Age: 73 Year
  Sex: Male
  Weight: 91.2 kg

DRUGS (1)
  1. GLIPIZIDE. [Suspect]
     Active Substance: GLIPIZIDE
     Route: 048
     Dates: start: 20170111, end: 20170301

REACTIONS (8)
  - Nausea [None]
  - Acute coronary syndrome [None]
  - Delirium [None]
  - Glycosylated haemoglobin decreased [None]
  - Blood glucose decreased [None]
  - Aggression [None]
  - Asthenia [None]
  - Fall [None]

NARRATIVE: CASE EVENT DATE: 20170301
